FAERS Safety Report 17589068 (Version 1)
Quarter: 2020Q1

REPORT INFORMATION
  Report Type: Spontaneous
  Country: FR (occurrence: FR)
  Receive Date: 20200327
  Receipt Date: 20200327
  Transmission Date: 20200409
  Serious: Yes (Hospitalization)
  Sender: FDA-Public Use
  Company Number: FR-TEVA-2020-FR-1211241

PATIENT
  Age: 45 Year
  Sex: Male
  Weight: 63 kg

DRUGS (3)
  1. TAZOBACTAM [Suspect]
     Active Substance: TAZOBACTAM
     Indication: ARTHRITIS INFECTIVE
     Dosage: 4 DF
     Route: 042
     Dates: start: 20200206, end: 20200212
  2. VANCOMYCINE (CHLORHYDRATE DE) [Suspect]
     Active Substance: VANCOMYCIN HYDROCHLORIDE
     Indication: ARTHRITIS INFECTIVE
     Dosage: 1800 MG
     Route: 042
     Dates: start: 20200205, end: 20200207
  3. PIPERACILLINE SODIQUE [Suspect]
     Active Substance: PIPERACILLIN
     Indication: ARTHRITIS INFECTIVE
     Dosage: 4 DF
     Route: 042
     Dates: start: 20200206, end: 20200212

REACTIONS (1)
  - Acute kidney injury [Recovering/Resolving]

NARRATIVE: CASE EVENT DATE: 20200207
